FAERS Safety Report 17612514 (Version 1)
Quarter: 2020Q2

REPORT INFORMATION
  Report Type: Spontaneous
  Country: US (occurrence: US)
  Receive Date: 20200401
  Receipt Date: 20200401
  Transmission Date: 20200713
  Serious: No
  Sender: FDA-Public Use
  Company Number: US-009507513-2003USA009642

PATIENT
  Age: 53 Year
  Sex: Male

DRUGS (2)
  1. CELESTONE SOLUSPAN [Suspect]
     Active Substance: BETAMETHASONE ACETATE\BETAMETHASONE SODIUM PHOSPHATE
  2. CELESTONE PEDIATRICO [Suspect]
     Active Substance: BETAMETHASONE
     Indication: INFLUENZA LIKE ILLNESS
     Dosage: 5 CC
     Route: 048

REACTIONS (3)
  - Product use in unapproved indication [Unknown]
  - Drug effective for unapproved indication [Recovered/Resolved]
  - Prescription drug used without a prescription [Unknown]
